FAERS Safety Report 5332334-0 (Version None)
Quarter: 2007Q2

REPORT INFORMATION
  Report Type: 
  Country: None (occurrence: None)
  Receive Date: 20070523
  Receipt Date: 20070517
  Transmission Date: 20071010
  Serious: Yes (Other)
  Sender: FDA-Public Use
  Company Number: A0645043A

PATIENT
  Age: 55 Year
  Sex: Female

DRUGS (5)
  1. ADVAIR DISKUS 100/50 [Suspect]
     Indication: ASTHMA
     Route: 055
     Dates: start: 20030101, end: 20070101
  2. SYNTHROID [Concomitant]
  3. VISTARIL [Concomitant]
  4. PRAVACHOL [Concomitant]
  5. HORMONE [Concomitant]

REACTIONS (2)
  - GLAUCOMA [None]
  - VISUAL FIELD DEFECT [None]
